FAERS Safety Report 15027794 (Version 1)
Quarter: 2018Q2

REPORT INFORMATION
  Report Type: Spontaneous
  Country: JP (occurrence: JP)
  Receive Date: 20180619
  Receipt Date: 20180619
  Transmission Date: 20180711
  Serious: Yes (Hospitalization)
  Sender: FDA-Public Use
  Company Number: JP-TEVA-2018-JP-909461

PATIENT
  Age: 83 Year
  Sex: Female

DRUGS (4)
  1. L DOPA [Concomitant]
     Active Substance: LEVODOPA
     Indication: PARKINSONISM
     Dosage: 600 MILLIGRAM DAILY;
     Route: 065
  2. PREDNISOLONE. [Suspect]
     Active Substance: PREDNISOLONE
     Indication: AUTOIMMUNE HEPATITIS
     Dosage: 20 MILLIGRAM DAILY;
     Route: 065
  3. L DOPA [Concomitant]
     Active Substance: LEVODOPA
     Dosage: 1200 MILLIGRAM DAILY;
     Route: 065
  4. PREDNISOLONE. [Suspect]
     Active Substance: PREDNISOLONE
     Dosage: 5 MILLIGRAM DAILY;
     Route: 065

REACTIONS (5)
  - Parkinsonism [Recovering/Resolving]
  - Hyperparathyroidism secondary [Recovered/Resolved]
  - Depressed level of consciousness [Recovered/Resolved]
  - Condition aggravated [Recovering/Resolving]
  - Hypercalcaemia [Recovered/Resolved]
